FAERS Safety Report 5599379-7 (Version None)
Quarter: 2007Q4

REPORT INFORMATION
  Report Type: 
  Country: None (occurrence: None)
  Receive Date: 20071226
  Receipt Date: 20071118
  Transmission Date: 20080405
  Serious: No
  Sender: FDA-Public Use
  Company Number: 2007PV033735

PATIENT
  Age: 60 Year
  Sex: Female

DRUGS (9)
  1. SYMLIN [Suspect]
     Indication: BLOOD INSULIN INCREASED
     Dosage: 60 MCG, QD, SC
     Route: 058
     Dates: start: 20071112, end: 20071115
  2. SYMLIN [Suspect]
     Indication: TYPE 2 DIABETES MELLITUS
     Dosage: 60 MCG, QD, SC
     Route: 058
     Dates: start: 20071112, end: 20071115
  3. SYMLIN [Suspect]
     Indication: WEIGHT CONTROL
     Dosage: 60 MCG, QD, SC
     Route: 058
     Dates: start: 20071112, end: 20071115
  4. SYMLIN [Suspect]
     Indication: BLOOD INSULIN INCREASED
     Dosage: 60 MCG, QD, SC
     Route: 058
     Dates: start: 20071116
  5. SYMLIN [Suspect]
     Indication: TYPE 2 DIABETES MELLITUS
     Dosage: 60 MCG, QD, SC
     Route: 058
     Dates: start: 20071116
  6. SYMLIN [Suspect]
     Indication: WEIGHT CONTROL
     Dosage: 60 MCG, QD, SC
     Route: 058
     Dates: start: 20071116
  7. SYMLIN [Suspect]
  8. HUMALOG [Concomitant]
  9. LANTUS [Concomitant]

REACTIONS (3)
  - BLOOD GLUCOSE INCREASED [None]
  - INTERCEPTED DRUG ADMINISTRATION ERROR [None]
  - NASOPHARYNGITIS [None]
